FAERS Safety Report 24190333 (Version 1)
Quarter: 2024Q3

REPORT INFORMATION
  Report Type: Spontaneous
  Country: US (occurrence: None)
  Receive Date: 20240808
  Receipt Date: 20240808
  Transmission Date: 20241016
  Serious: No
  Sender: Public
  Company Number: None

PATIENT
  Age: 94 Year
  Sex: Female

DRUGS (1)
  1. AMMONIUM LACTATE [Suspect]
     Active Substance: AMMONIUM LACTATE

REACTIONS (1)
  - Device issue [None]

NARRATIVE: CASE EVENT DATE: 20240805
